FAERS Safety Report 11102434 (Version 5)
Quarter: 2015Q4

REPORT INFORMATION
  Report Type: Report from Study
  Country: US (occurrence: US)
  Receive Date: 20150511
  Receipt Date: 20151216
  Transmission Date: 20160304
  Serious: Yes (Hospitalization)
  Sender: FDA-Public Use
  Company Number: US-AMGEN-USASP2015044974

PATIENT
  Age: 77 Year
  Sex: Female

DRUGS (3)
  1. METHOTREXATE [Concomitant]
     Active Substance: METHOTREXATE
     Dosage: UNK
     Dates: end: 2015
  2. ENBREL [Suspect]
     Active Substance: ETANERCEPT
     Indication: RHEUMATOID ARTHRITIS
     Dosage: 50 MG, QWK
     Route: 058
     Dates: start: 201201, end: 2015
  3. ENBREL [Suspect]
     Active Substance: ETANERCEPT
     Dosage: UNK UNK, UNK
     Route: 065

REACTIONS (11)
  - Staphylococcal infection [Unknown]
  - Toe operation [Recovered/Resolved]
  - Localised infection [Recovered/Resolved]
  - Skin infection [Recovered/Resolved]
  - Feeling abnormal [Recovered/Resolved]
  - Cardiac disorder [Unknown]
  - Infection [Recovered/Resolved]
  - Pneumonia [Unknown]
  - Abscess limb [Recovered/Resolved]
  - Chronic obstructive pulmonary disease [Unknown]
  - Cyst [Recovering/Resolving]

NARRATIVE: CASE EVENT DATE: 2015
